FAERS Safety Report 24592942 (Version 1)
Quarter: 2024Q4

REPORT INFORMATION
  Report Type: Report from Study
  Country: IN (occurrence: IN)
  Receive Date: 20241108
  Receipt Date: 20241108
  Transmission Date: 20250114
  Serious: Yes (Death, Other)
  Sender: ALEXION PHARMACEUTICALS
  Company Number: IN-AstraZeneca-CH-00739844A

PATIENT
  Age: 53 Year

DRUGS (4)
  1. DURVALUMAB [Suspect]
     Active Substance: DURVALUMAB
     Indication: Biliary neoplasm
     Dosage: 500 MILLIGRAM, Q3W
  2. DURVALUMAB [Suspect]
     Active Substance: DURVALUMAB
     Dosage: 500 MILLIGRAM, Q3W
  3. DURVALUMAB [Suspect]
     Active Substance: DURVALUMAB
     Dosage: 500 MILLIGRAM, Q3W
  4. DURVALUMAB [Suspect]
     Active Substance: DURVALUMAB
     Dosage: 500 MILLIGRAM, Q3W

REACTIONS (4)
  - Myocardial infarction [Fatal]
  - Portal vein occlusion [Fatal]
  - Haematological infection [Fatal]
  - Platelet count decreased [Fatal]
